FAERS Safety Report 21342062 (Version 1)
Quarter: 2022Q3

REPORT INFORMATION
  Report Type: Other
  Country: US (occurrence: None)
  Receive Date: 20220916
  Receipt Date: 20220916
  Transmission Date: 20221026
  Serious: Yes (Life-Threatening, Other)
  Sender: FDA-Public Use
  Company Number: US-ROCHE-3178536

PATIENT
  Sex: Male
  Weight: 72.640 kg

DRUGS (9)
  1. OCREVUS [Suspect]
     Active Substance: OCRELIZUMAB
     Indication: Multiple sclerosis
     Dosage: NO, DOT: 01/OCT/2017, 13/DEC/2021, 02/JUN/2021, 09/OCT/2020.
     Route: 042
     Dates: start: 2015, end: 202201
  2. OCREVUS [Suspect]
     Active Substance: OCRELIZUMAB
     Dosage: (STRENGTH: 300 MG/10 ML VIAL)
     Route: 042
     Dates: start: 20211213
  3. KLONOPIN [Suspect]
     Active Substance: CLONAZEPAM
     Indication: Anxiety
     Dosage: AS NEEDED ;ONGOING: YES
     Route: 048
  4. ZOLOFT [Concomitant]
     Active Substance: SERTRALINE HYDROCHLORIDE
  5. AMPYRA [Concomitant]
     Active Substance: DALFAMPRIDINE
  6. AMANTADINE [Concomitant]
     Active Substance: AMANTADINE
  7. ALPRAZOLAM [Concomitant]
     Active Substance: ALPRAZOLAM
  8. VITAMIN D3 [Concomitant]
     Active Substance: CHOLECALCIFEROL
  9. SILDENAFIL [Concomitant]
     Active Substance: SILDENAFIL

REACTIONS (3)
  - Lung carcinoma cell type unspecified stage IV [Not Recovered/Not Resolved]
  - Gastric neoplasm [Unknown]
  - Off label use [Unknown]
